FAERS Safety Report 21049048 (Version 1)
Quarter: 2022Q3

REPORT INFORMATION
  Report Type: Report from Study
  Country: DE (occurrence: DE)
  Receive Date: 20220706
  Receipt Date: 20220706
  Transmission Date: 20221026
  Serious: Yes (Other)
  Sender: FDA-Public Use
  Company Number: DE-TAKEDA-2022TUS019299

PATIENT
  Age: 41 Year
  Sex: Female
  Weight: 59 kg

DRUGS (4)
  1. VEDOLIZUMAB [Suspect]
     Active Substance: VEDOLIZUMAB
     Indication: Colitis ulcerative
     Dosage: 300 MILLIGRAM
     Route: 042
     Dates: start: 20210913, end: 20220222
  2. VEDOLIZUMAB [Suspect]
     Active Substance: VEDOLIZUMAB
     Indication: Crohn^s disease
  3. MESALAMINE [Concomitant]
     Active Substance: MESALAMINE
     Dosage: UNK
     Dates: start: 20211025
  4. FILGOTINIB [Concomitant]
     Active Substance: FILGOTINIB
     Dosage: UNK

REACTIONS (2)
  - Colitis ulcerative [Recovered/Resolved]
  - Loss of therapeutic response [Recovered/Resolved]

NARRATIVE: CASE EVENT DATE: 20220222
